FAERS Safety Report 4754628-X (Version None)
Quarter: 2005Q3

REPORT INFORMATION
  Report Type: 
  Country: None (occurrence: None)
  Receive Date: 20050829
  Receipt Date: 20050816
  Transmission Date: 20060218
  Serious: Yes (Hospitalization)
  Sender: FDA-Public Use
  Company Number: BE-GLAXOSMITHKLINE-B0390850A

PATIENT
  Age: 85 Year
  Sex: Male
  Weight: 88 kg

DRUGS (5)
  1. GW679769 [Suspect]
     Dosage: 150MG PER DAY
     Route: 048
     Dates: start: 20050810, end: 20050812
  2. ONDANSETRON [Suspect]
     Route: 042
     Dates: start: 20050810, end: 20050810
  3. DEXAMETHASONE [Suspect]
     Route: 048
     Dates: start: 20050810, end: 20050813
  4. CISPLATIN [Concomitant]
     Indication: NON-SMALL CELL LUNG CANCER
     Dosage: 165MG PER DAY
     Route: 042
     Dates: start: 20050810
  5. VINORELBINE [Concomitant]
     Indication: NON-SMALL CELL LUNG CANCER
     Dosage: 51.6MG PER DAY
     Route: 042
     Dates: start: 20050810

REACTIONS (1)
  - HICCUPS [None]
